FAERS Safety Report 21445204 (Version 5)
Quarter: 2022Q4

REPORT INFORMATION
  Report Type: Spontaneous
  Country: JP (occurrence: JP)
  Receive Date: 20221012
  Receipt Date: 20221222
  Transmission Date: 20230113
  Serious: Yes (Death, Other)
  Sender: FDA-Public Use
  Company Number: JP-JNJFOC-20221011840

PATIENT
  Age: 68 Year
  Sex: Male

DRUGS (13)
  1. HALOMONTH [Suspect]
     Active Substance: HALOPERIDOL DECANOATE
     Indication: Schizophrenia
     Dosage: HALOMONTH
     Route: 030
     Dates: start: 20220614, end: 20220614
  2. HALOMONTH [Suspect]
     Active Substance: HALOPERIDOL DECANOATE
     Dosage: HALOMONTH
     Route: 030
     Dates: start: 20220810
  3. HALOMONTH [Suspect]
     Active Substance: HALOPERIDOL DECANOATE
     Dosage: HALOMONTH
     Route: 030
     Dates: start: 20220713, end: 20220713
  4. RISPERIDONE [Suspect]
     Active Substance: RISPERIDONE
     Indication: Schizophrenia
     Route: 048
     Dates: start: 20220517, end: 20220523
  5. RISPERIDONE [Suspect]
     Active Substance: RISPERIDONE
     Route: 048
     Dates: start: 20220524, end: 20220630
  6. RISPERIDONE [Suspect]
     Active Substance: RISPERIDONE
     Route: 048
     Dates: start: 20220701, end: 20220809
  7. RISPERIDONE [Suspect]
     Active Substance: RISPERIDONE
     Route: 048
     Dates: start: 20220810, end: 20220816
  8. RISPERIDONE [Suspect]
     Active Substance: RISPERIDONE
     Route: 048
     Dates: start: 20220817, end: 20220830
  9. RISPERIDONE [Suspect]
     Active Substance: RISPERIDONE
     Route: 048
     Dates: start: 20220831, end: 20220906
  10. VALBENAZINE TOSYLATE [Suspect]
     Active Substance: VALBENAZINE TOSYLATE
     Indication: Tardive dyskinesia
     Route: 048
     Dates: start: 20220726, end: 20220823
  11. VALBENAZINE TOSYLATE [Suspect]
     Active Substance: VALBENAZINE TOSYLATE
     Route: 048
     Dates: start: 20220824, end: 20221004
  12. EPINEPHRINE [Concomitant]
     Active Substance: EPINEPHRINE
     Indication: Cardiac arrest
     Route: 065
  13. TRIAZOLAM [Concomitant]
     Active Substance: TRIAZOLAM
     Route: 048
     Dates: start: 20220504

REACTIONS (3)
  - Cardiac failure acute [Fatal]
  - Pneumonia aspiration [Recovering/Resolving]
  - Tardive dyskinesia [Unknown]

NARRATIVE: CASE EVENT DATE: 20220101
